FAERS Safety Report 5598767-2 (Version None)
Quarter: 2008Q1

REPORT INFORMATION
  Report Type: 
  Country: None (occurrence: None)
  Receive Date: 20080122
  Receipt Date: 20080114
  Transmission Date: 20080703
  Serious: Yes (Congenital Anomaly)
  Sender: FDA-Public Use
  Company Number: GB-RANBAXY-2008RR-12574

PATIENT

DRUGS (3)
  1. AMOXICILLIN CAPSULES BP 500MG [Suspect]
     Indication: URINARY TRACT INFECTION
     Dosage: UNK
     Dates: start: 20070320, end: 20070327
  2. MALARONE [Suspect]
     Indication: MALARIA PROPHYLAXIS
     Dosage: UNK
     Route: 064
     Dates: start: 20060909, end: 20061204
  3. PARACETAMOL CAPSULES 500MG [Suspect]
     Indication: PAIN
     Dosage: UNK
     Dates: start: 20070111, end: 20070115

REACTIONS (2)
  - DRUG EXPOSURE DURING PREGNANCY [None]
  - VENTRICULAR SEPTAL DEFECT [None]
